FAERS Safety Report 16201482 (Version 1)
Quarter: 2019Q2

REPORT INFORMATION
  Report Type: Spontaneous
  Country: US (occurrence: US)
  Receive Date: 20190415
  Receipt Date: 20190415
  Transmission Date: 20190711
  Serious: Yes (Other)
  Sender: FDA-Public Use
  Company Number: None

PATIENT
  Age: 69 Year
  Sex: Female
  Weight: 95.85 kg

DRUGS (3)
  1. TELMISARTAN HCTZ 40/12.5 MG GENERIC [Suspect]
     Active Substance: HYDROCHLOROTHIAZIDE\TELMISARTAN
     Indication: HYPERTENSION
     Dosage: ?          QUANTITY:30 TABLET(S);?
     Route: 048
     Dates: start: 20190217, end: 20190303
  2. NORVASC [Concomitant]
     Active Substance: AMLODIPINE BESYLATE
  3. CALCTRATE [Concomitant]

REACTIONS (4)
  - Hypoaesthesia [None]
  - Pain in extremity [None]
  - Paraesthesia [None]
  - Rash [None]

NARRATIVE: CASE EVENT DATE: 20190217
